FAERS Safety Report 4946404-X (Version None)
Quarter: 2006Q1

REPORT INFORMATION
  Report Type: 
  Country: None (occurrence: None)
  Receive Date: 20060317
  Receipt Date: 20060307
  Transmission Date: 20060701
  Serious: Yes (Hospitalization)
  Sender: FDA-Public Use
  Company Number: PHHO2006CL03951

PATIENT
  Sex: Female

DRUGS (4)
  1. ZELMAC / HTF 919A [Suspect]
     Dates: start: 20060101
  2. NIFEDIPINE [Concomitant]
  3. NEFERSIL [Concomitant]
  4. GLIBENCLAMIDE [Concomitant]

REACTIONS (2)
  - GASTRIC CANCER [None]
  - SURGERY [None]
